FAERS Safety Report 23124725 (Version 1)
Quarter: 2023Q4

REPORT INFORMATION
  Report Type: Report from Study
  Country: CA (occurrence: CA)
  Receive Date: 20231030
  Receipt Date: 20231030
  Transmission Date: 20240110
  Serious: Yes (Death)
  Sender: FDA-Public Use
  Company Number: CA-002147023-PHHY2017CA050092

PATIENT
  Age: 33 Year
  Sex: Male

DRUGS (2)
  1. AFINITOR [Suspect]
     Active Substance: EVEROLIMUS
     Indication: Astrocytoma, low grade
     Dosage: 10 MG, QD
     Route: 048
     Dates: start: 20161101
  2. AFINITOR [Suspect]
     Active Substance: EVEROLIMUS
     Dosage: 5 MG, BID
     Route: 065
     Dates: start: 20220117

REACTIONS (8)
  - Death [Fatal]
  - Acne [Recovered/Resolved]
  - Pyrexia [Unknown]
  - Rash [Recovered/Resolved]
  - Blood glucose increased [Recovering/Resolving]
  - Blood cholesterol increased [Unknown]
  - Pruritus [Unknown]
  - Inappropriate schedule of product administration [Unknown]

NARRATIVE: CASE EVENT DATE: 20160101
